FAERS Safety Report 8729590 (Version 2)
Quarter: 2015Q2

REPORT INFORMATION
  Report Type: Report from Study
  Country: US (occurrence: US)
  Receive Date: 20120817
  Receipt Date: 20150406
  Transmission Date: 20150821
  Serious: Yes (Hospitalization)
  Sender: FDA-Public Use
  Company Number: US-ROCHE-1101497

PATIENT
  Sex: Male

DRUGS (1)
  1. ACTIVASE [Suspect]
     Active Substance: ALTEPLASE
     Indication: MYOCARDIAL INFARCTION
     Route: 040
     Dates: start: 19940225

REACTIONS (4)
  - Abdominal pain [Unknown]
  - Vomiting [Unknown]
  - Hyperchlorhydria [Unknown]
  - Chest pain [Recovered/Resolved]
